FAERS Safety Report 23193137 (Version 2)
Quarter: 2023Q4

REPORT INFORMATION
  Report Type: Spontaneous
  Country: US (occurrence: US)
  Receive Date: 20231116
  Receipt Date: 20231123
  Transmission Date: 20240109
  Serious: Yes (Hospitalization)
  Sender: FDA-Public Use
  Company Number: US-TEVA-2023-US-2944230

PATIENT
  Age: 50 Year
  Sex: Male

DRUGS (7)
  1. HYDROCORTISONE [Suspect]
     Active Substance: HYDROCORTISONE
     Indication: Adrenal insufficiency
     Dosage: 100MG EVERY 8 HOURS
     Route: 065
  2. HYDROCORTISONE [Suspect]
     Active Substance: HYDROCORTISONE
     Indication: Autoimmune thyroiditis
     Dosage: 10 MILLIGRAM DAILY;
     Route: 065
  3. HYDROCORTISONE [Suspect]
     Active Substance: HYDROCORTISONE
     Indication: Decompensated hypothyroidism
  4. PREDNISONE [Suspect]
     Active Substance: PREDNISONE
     Indication: Autoimmune thyroiditis
     Dosage: 20 MILLIGRAM DAILY;
     Route: 065
  5. LEVOTHYROXINE [Concomitant]
     Active Substance: LEVOTHYROXINE
     Indication: Adrenal insufficiency
     Route: 065
  6. LIOTHYRONINE SODIUM [Concomitant]
     Active Substance: LIOTHYRONINE SODIUM
     Indication: Adrenal insufficiency
     Route: 065
  7. DESMOPRESSIN [Concomitant]
     Active Substance: DESMOPRESSIN
     Indication: Product used for unknown indication
     Route: 065

REACTIONS (3)
  - Tracheal disorder [Recovered/Resolved]
  - Perforation [Recovered/Resolved]
  - Subcutaneous emphysema [Recovered/Resolved]
